FAERS Safety Report 13993133 (Version 1)
Quarter: 2017Q3

REPORT INFORMATION
  Report Type: Spontaneous
  Country: HR (occurrence: HR)
  Receive Date: 20170920
  Receipt Date: 20170920
  Transmission Date: 20171128
  Serious: Yes (Other)
  Sender: FDA-Public Use
  Company Number: HR-TEVA-806148ACC

PATIENT
  Age: 63 Year
  Sex: Female
  Weight: 75 kg

DRUGS (1)
  1. OXALIPLATIN. [Suspect]
     Active Substance: OXALIPLATIN
     Indication: COLON CANCER METASTATIC
     Dosage: 120 MILLIGRAM DAILY;
     Route: 042
     Dates: start: 20170828, end: 20170828

REACTIONS (6)
  - Pruritus [Recovered/Resolved]
  - Erythema [Recovered/Resolved]
  - Vomiting [Recovered/Resolved]
  - Loss of consciousness [Recovered/Resolved]
  - Tachycardia [Recovered/Resolved]
  - Frequent bowel movements [Recovered/Resolved]

NARRATIVE: CASE EVENT DATE: 20170828
